FAERS Safety Report 4434399-7 (Version None)
Quarter: 2004Q3

REPORT INFORMATION
  Report Type: 
  Country: None (occurrence: None)
  Receive Date: 20040726
  Receipt Date: 20040406
  Transmission Date: 20050211
  Serious: No
  Sender: FDA-Public Use
  Company Number: USA040464228

PATIENT
  Age: 74 Year
  Sex: Female
  Weight: 87 kg

DRUGS (2)
  1. FORTEO [Suspect]
     Indication: OSTEOPOROSIS
     Dosage: 20 UG/L DAY
     Dates: start: 20040301
  2. LIPITOR [Concomitant]

REACTIONS (7)
  - CHEST WALL PAIN [None]
  - COUGH [None]
  - DIZZINESS [None]
  - FATIGUE [None]
  - MUSCLE CRAMP [None]
  - MYALGIA [None]
  - RHINORRHOEA [None]
